FAERS Safety Report 16678941 (Version 1)
Quarter: 2019Q3

REPORT INFORMATION
  Report Type: Spontaneous
  Country: IT (occurrence: IT)
  Receive Date: 20190807
  Receipt Date: 20190807
  Transmission Date: 20191004
  Serious: Yes (Other)
  Sender: FDA-Public Use
  Company Number: IT-EISAI MEDICAL RESEARCH-EC-2019-059803

PATIENT
  Age: 50 Year
  Sex: Female

DRUGS (3)
  1. CARBAMAZEPINE. [Concomitant]
     Active Substance: CARBAMAZEPINE
     Indication: EPILEPTIC ENCEPHALOPATHY
     Dosage: 1200 MG, FREQUENCY UNKNOWN
     Dates: start: 20110101, end: 20190709
  2. GARDENALE [Concomitant]
     Active Substance: PHENOBARBITAL
     Indication: EPILEPTIC ENCEPHALOPATHY
     Dosage: 200 MG, FREQUENCY UNKNOWN
     Route: 048
     Dates: start: 20110101, end: 20190709
  3. FYCOMPA [Suspect]
     Active Substance: PERAMPANEL
     Indication: EPILEPTIC ENCEPHALOPATHY
     Route: 048
     Dates: start: 20180920, end: 20190425

REACTIONS (3)
  - Nervousness [Recovered/Resolved]
  - Behaviour disorder [Recovered/Resolved]
  - Irritability [Recovered/Resolved]

NARRATIVE: CASE EVENT DATE: 20180920
